FAERS Safety Report 16272467 (Version 2)
Quarter: 2024Q3

REPORT INFORMATION
  Report Type: Report from Study
  Country: JP (occurrence: JP)
  Receive Date: 20190503
  Receipt Date: 20240724
  Transmission Date: 20241017
  Serious: Yes (Hospitalization)
  Sender: BAUSCH AND LOMB
  Company Number: JP-BAUSCH-BL-2019-011131

PATIENT
  Age: 86 Year
  Sex: Male
  Weight: 65 kg

DRUGS (22)
  1. TARGRETIN [Suspect]
     Active Substance: BEXAROTENE
     Indication: Peripheral T-cell lymphoma unspecified
     Route: 048
     Dates: start: 20171120, end: 20171201
  2. TARGRETIN [Suspect]
     Active Substance: BEXAROTENE
     Route: 048
     Dates: start: 20171208
  3. TARGRETIN [Suspect]
     Active Substance: BEXAROTENE
     Route: 048
  4. TARGRETIN [Suspect]
     Active Substance: BEXAROTENE
     Route: 048
     Dates: end: 20180924
  5. TARGRETIN [Suspect]
     Active Substance: BEXAROTENE
     Route: 048
     Dates: start: 20180925
  6. TARGRETIN [Suspect]
     Active Substance: BEXAROTENE
     Route: 048
  7. TARGRETIN [Suspect]
     Active Substance: BEXAROTENE
     Route: 048
     Dates: end: 2021
  8. TARGRETIN [Suspect]
     Active Substance: BEXAROTENE
     Route: 048
     Dates: start: 2021, end: 2021
  9. TARGRETIN [Suspect]
     Active Substance: BEXAROTENE
     Route: 048
     Dates: start: 2021
  10. GLIMEPIRIDE [Concomitant]
     Active Substance: GLIMEPIRIDE
     Indication: Product used for unknown indication
  11. TORSEMIDE [Concomitant]
     Active Substance: TORSEMIDE
     Indication: Product used for unknown indication
  12. RABEPRAZOLE [Concomitant]
     Active Substance: RABEPRAZOLE
     Indication: Product used for unknown indication
     Route: 048
  13. EQUA TABLETS [Concomitant]
     Indication: Product used for unknown indication
  14. EPINASTINE HYDROCHLORIDE [Concomitant]
     Active Substance: EPINASTINE HYDROCHLORIDE
     Indication: Product used for unknown indication
  15. AZULFIDINE [Concomitant]
     Active Substance: SULFASALAZINE
     Indication: Product used for unknown indication
  16. CILOSTAZOL [Concomitant]
     Active Substance: CILOSTAZOL
     Indication: Product used for unknown indication
  17. CELECOXIB [Concomitant]
     Active Substance: CELECOXIB
     Indication: Product used for unknown indication
  18. PREDONINE [Concomitant]
     Active Substance: PREDNISOLONE
     Indication: Product used for unknown indication
  19. MYALONE [Concomitant]
     Indication: Product used for unknown indication
  20. LEVOTHYROXINE [Concomitant]
     Active Substance: LEVOTHYROXINE\LEVOTHYROXINE SODIUM
     Indication: Product used for unknown indication
  21. MIGLITOL [Concomitant]
     Active Substance: MIGLITOL
     Indication: Product used for unknown indication
  22. BETAMETHASONE BUTYRATE PROPIONATE [Concomitant]
     Active Substance: BETAMETHASONE BUTYRATE PROPIONATE
     Indication: Product used for unknown indication

REACTIONS (7)
  - Intervertebral disc protrusion [Not Recovered/Not Resolved]
  - Hyperkalaemia [Recovered/Resolved]
  - Weight decreased [Recovered/Resolved]
  - Anaemia [Not Recovered/Not Resolved]
  - Hypercholesterolaemia [Recovered/Resolved]
  - Hypothyroidism [Not Recovered/Not Resolved]
  - Decreased appetite [Recovered/Resolved]

NARRATIVE: CASE EVENT DATE: 20171208
